FAERS Safety Report 9179845 (Version 1)
Quarter: 2012Q4

REPORT INFORMATION
  Report Type: Report from Study
  Country: NL (occurrence: NL)
  Receive Date: 20121029
  Receipt Date: 20121029
  Transmission Date: 20130627
  Serious: Yes (Hospitalization, Disabling)
  Sender: FDA-Public Use
  Company Number: NL-BAXTER-2012BAX020954

PATIENT
  Age: 70 None
  Sex: Female
  Weight: 106 kg

DRUGS (7)
  1. ENDOXAN I.V., POEDER VOOR OPLOSSING VOOR INJECTIE 200, 500, 1000 MG [Suspect]
     Indication: B-CELL LYMPHOMA
     Route: 065
     Dates: start: 201108
  2. RITUXIMAB [Suspect]
     Indication: B-CELL LYMPHOMA
     Route: 042
     Dates: start: 20091103
  3. RITUXIMAB [Suspect]
     Route: 042
     Dates: start: 20110810
  4. DOXORUBICIN [Suspect]
     Indication: B-CELL LYMPHOMA
     Route: 065
     Dates: start: 201108
  5. VINCRISTINE [Suspect]
     Indication: B-CELL LYMPHOMA
     Route: 065
     Dates: start: 201108
  6. FILGRASTIM [Suspect]
     Indication: B-CELL LYMPHOMA
     Route: 065
     Dates: start: 201108
  7. PREDNISONE [Suspect]
     Indication: B-CELL LYMPHOMA
     Route: 065
     Dates: start: 201108

REACTIONS (1)
  - Diffuse large B-cell lymphoma recurrent [Not Recovered/Not Resolved]
